FAERS Safety Report 8615027 (Version 3)
Quarter: 2013Q3

REPORT INFORMATION
  Report Type: Report from Study
  Country: JP (occurrence: JP)
  Receive Date: 20120614
  Receipt Date: 20130702
  Transmission Date: 20140515
  Serious: No
  Sender: FDA-Public Use
  Company Number: JP-JNJFOC-20120604565

PATIENT
  Age: 42 Year
  Sex: Male
  Weight: 175 kg

DRUGS (6)
  1. STELARA [Suspect]
     Indication: PSORIASIS
     Route: 058
     Dates: start: 20120411, end: 20120411
  2. STELARA [Suspect]
     Indication: PSORIASIS
     Route: 058
     Dates: start: 20120509
  3. DERMOVATE [Concomitant]
     Indication: PSORIASIS
     Dosage: OINTMENT
     Route: 061
     Dates: start: 20120606
  4. DERMOVATE [Concomitant]
     Indication: PSORIASIS
     Dosage: LIQUID MEDICINE FOR EXTERNAL USE
     Route: 061
     Dates: start: 20120606
  5. OXAROL [Concomitant]
     Indication: PSORIASIS
     Route: 061
     Dates: start: 20120606
  6. DOVONEX [Concomitant]
     Indication: PSORIASIS
     Route: 061
     Dates: start: 20120606

REACTIONS (3)
  - Dermatitis [Recovered/Resolved]
  - Skin exfoliation [Recovered/Resolved]
  - Drug ineffective [Unknown]
